FAERS Safety Report 7413718-3 (Version None)
Quarter: 2011Q2

REPORT INFORMATION
  Report Type: 
  Country: None (occurrence: None)
  Receive Date: 20110413
  Receipt Date: 20110411
  Transmission Date: 20111010
  Serious: Yes (Life-Threatening, Hospitalization)
  Sender: FDA-Public Use
  Company Number: FR-PFIZER INC-2011073939

PATIENT
  Age: 84 Year
  Sex: Female

DRUGS (15)
  1. SPECIAFOLDINE [Concomitant]
     Dosage: 5 MG, UNK
     Route: 048
     Dates: start: 20101123, end: 20101213
  2. URBANYL [Concomitant]
     Dosage: 20 MG
     Route: 048
     Dates: end: 20101126
  3. NEBIVOLOL [Concomitant]
     Dosage: 5 MG DAILY
     Route: 048
  4. INIPOMP [Suspect]
     Dosage: 40 MG, 1X/DAY
     Route: 048
  5. PHYSIOTENS [Concomitant]
     Dosage: 0.4 MG DAILY
     Route: 048
  6. FUMAFER [Concomitant]
     Dosage: 2 DF, UNK
     Route: 048
     Dates: end: 20101213
  7. PRADAXA [Suspect]
     Indication: THROMBOSIS PROPHYLAXIS
     Dosage: 75 MG, 2X/DAY
     Route: 048
     Dates: start: 20101115, end: 20101126
  8. ACETAMINOPHEN [Concomitant]
     Dosage: 4 G
     Route: 048
     Dates: end: 20101213
  9. ALLOPURINOL [Concomitant]
     Dosage: 100 MG, 1X/DAY
     Route: 048
  10. SPECIAFOLDINE [Concomitant]
     Dosage: 10 MG, UNK
  11. MYOLASTAN [Concomitant]
     Dosage: 1 DF, UNK
     Route: 048
     Dates: start: 20101125, end: 20101213
  12. LOGIRENE [Concomitant]
     Dosage: 1 DF, UNK
     Route: 048
  13. TOPALGIC [Concomitant]
     Dosage: 200 MG
     Route: 048
     Dates: start: 20101123, end: 20101126
  14. TRIMEBUTINE [Concomitant]
     Dosage: 300 MG DAIY
     Route: 048
     Dates: end: 20101213
  15. COVERSYL [Concomitant]
     Dosage: 2.5 MG DAILY
     Route: 048

REACTIONS (2)
  - DRUG INEFFECTIVE [None]
  - DEEP VEIN THROMBOSIS [None]
